FAERS Safety Report 5199630-1 (Version None)
Quarter: 2007Q1

REPORT INFORMATION
  Report Type: 
  Country: None (occurrence: None)
  Receive Date: 20070103
  Receipt Date: 20070103
  Transmission Date: 20070707
  Serious: No
  Sender: FDA-Public Use
  Company Number: None

PATIENT
  Sex: Male

DRUGS (1)
  1. SUTENT [Suspect]
     Indication: RENAL CELL CARCINOMA STAGE UNSPECIFIED
     Dosage: 50MG   I QD FOR 28 DAYS    PO
     Route: 048
     Dates: start: 20061125, end: 20061208

REACTIONS (4)
  - ADVERSE DRUG REACTION [None]
  - JAW DISORDER [None]
  - JOINT LOCK [None]
  - ORAL INTAKE REDUCED [None]
